FAERS Safety Report 9197692 (Version 2)
Quarter: 2013Q2

REPORT INFORMATION
  Report Type: Spontaneous
  Country: US (occurrence: US)
  Receive Date: 20130328
  Receipt Date: 20130426
  Transmission Date: 20140414
  Serious: Yes (Hospitalization, Other)
  Sender: FDA-Public Use
  Company Number: US-PURDUE-USA-2013-0100169

PATIENT
  Sex: Female

DRUGS (3)
  1. OXYCONTIN (NDA 22-272) [Suspect]
     Indication: PAIN
     Route: 048
  2. PERCOCET /00867901/ [Suspect]
     Indication: PAIN
     Route: 048
  3. METHADONE [Suspect]
     Indication: PRODUCT USED FOR UNKNOWN INDICATION

REACTIONS (5)
  - Drug dependence [Unknown]
  - Suicide attempt [Unknown]
  - Foot operation [Unknown]
  - Unevaluable event [Unknown]
  - Intentional drug misuse [Unknown]
